FAERS Safety Report 8078476-0 (Version None)
Quarter: 2012Q1

REPORT INFORMATION
  Report Type: 
  Country: None (occurrence: None)
  Receive Date: 20120127
  Receipt Date: 20110314
  Transmission Date: 20120608
  Serious: No
  Sender: FDA-Public Use
  Company Number: PR-ABBOTT-11P-131-0708121-00

PATIENT
  Sex: Male
  Weight: 94.432 kg

DRUGS (8)
  1. LANTUS [Concomitant]
     Indication: DIABETES MELLITUS
     Dosage: 40-50 UNITS DAILY
     Route: 058
  2. GLUCOVANCE [Concomitant]
     Indication: DIABETES MELLITUS
     Route: 048
  3. DAFLONEX [Concomitant]
     Indication: ARTHRITIS
     Route: 048
  4. COREG [Concomitant]
     Indication: CARDIAC DISORDER
     Route: 048
  5. NEXIUM [Concomitant]
     Indication: GASTRITIS
     Route: 048
  6. HUMIRA [Suspect]
     Indication: PSORIATIC ARTHROPATHY
     Dosage: 1 PEN
     Route: 058
     Dates: start: 20110101
  7. LYRICA [Concomitant]
     Indication: DIABETIC NEUROPATHY
     Route: 048
  8. SULINDAC [Concomitant]
     Indication: DIABETIC NEUROPATHY
     Route: 048

REACTIONS (1)
  - ASTHENIA [None]
